FAERS Safety Report 22104313 (Version 1)
Quarter: 2023Q1

REPORT INFORMATION
  Report Type: Spontaneous
  Country: SE (occurrence: SE)
  Receive Date: 20230316
  Receipt Date: 20230316
  Transmission Date: 20230418
  Serious: Yes (Hospitalization)
  Sender: FDA-Public Use
  Company Number: None

PATIENT
  Age: 47 Year
  Sex: Female

DRUGS (1)
  1. VENLAFAXINE [Suspect]
     Active Substance: VENLAFAXINE HYDROCHLORIDE
     Indication: Product used for unknown indication
     Dosage: VENLAFAXINE 150 MG, 80 TABLET
     Route: 065
     Dates: start: 20191224, end: 20191224

REACTIONS (7)
  - Seizure [Unknown]
  - Intentional overdose [Unknown]
  - Blood lactic acid increased [Unknown]
  - Pyrexia [Unknown]
  - Vomiting [Unknown]
  - Tachycardia [Unknown]
  - Intentional self-injury [Unknown]

NARRATIVE: CASE EVENT DATE: 20191224
